FAERS Safety Report 18171356 (Version 2)
Quarter: 2020Q3

REPORT INFORMATION
  Report Type: Spontaneous
  Country: CN (occurrence: CN)
  Receive Date: 20200819
  Receipt Date: 20200824
  Transmission Date: 20201103
  Serious: Yes (Hospitalization, Other)
  Sender: FDA-Public Use
  Company Number: CN-CELGENEUS-CHN-20200803423

PATIENT
  Age: 63 Year
  Sex: Female
  Weight: 52 kg

DRUGS (6)
  1. ABRAXANE [Suspect]
     Active Substance: PACLITAXEL
     Indication: CHEMOTHERAPY
  2. ABRAXANE [Suspect]
     Active Substance: PACLITAXEL
     Indication: OVARIAN CANCER
     Dosage: 200 MILLIGRAM
     Route: 041
     Dates: start: 20200723, end: 20200723
  3. JIE BAI SHU [Suspect]
     Active Substance: NEDAPLATIN
     Indication: CHEMOTHERAPY
  4. ABRAXANE [Suspect]
     Active Substance: PACLITAXEL
     Indication: OFF LABEL USE
  5. JIE BAI SHU [Suspect]
     Active Substance: NEDAPLATIN
     Indication: OVARIAN CANCER
     Dosage: 30 MILLIGRAM
     Route: 041
     Dates: start: 20200723, end: 20200723
  6. DEXAMETHASONE. [Concomitant]
     Active Substance: DEXAMETHASONE
     Indication: PRODUCT USED FOR UNKNOWN INDICATION
     Route: 041
     Dates: start: 2020

REACTIONS (1)
  - Anaphylactic shock [Recovering/Resolving]

NARRATIVE: CASE EVENT DATE: 20200727
